FAERS Safety Report 21373798 (Version 2)
Quarter: 2022Q4

REPORT INFORMATION
  Report Type: Spontaneous
  Country: US (occurrence: None)
  Receive Date: 20220926
  Receipt Date: 20221107
  Transmission Date: 20230113
  Serious: No
  Sender: FDA-Public Use
  Company Number: 2022A301896

PATIENT
  Sex: Female
  Weight: 90.3 kg

DRUGS (2)
  1. BYDUREON BCISE [Suspect]
     Active Substance: EXENATIDE
     Indication: Type 2 diabetes mellitus
     Route: 058
  2. BYDUREON [Suspect]
     Active Substance: EXENATIDE
     Indication: Type 2 diabetes mellitus
     Route: 058

REACTIONS (9)
  - Weight increased [Unknown]
  - Blood glucose increased [Unknown]
  - Injection site haemorrhage [Unknown]
  - Extra dose administered [Unknown]
  - Product dose omission in error [Unknown]
  - Device use issue [Unknown]
  - Device malfunction [Unknown]
  - Device delivery system issue [Unknown]
  - Liquid product physical issue [Unknown]
